FAERS Safety Report 5126092-2 (Version None)
Quarter: 2006Q4

REPORT INFORMATION
  Report Type: 
  Country: None (occurrence: None)
  Receive Date: 20061012
  Receipt Date: 20061002
  Transmission Date: 20070319
  Serious: Yes (Other)
  Sender: FDA-Public Use
  Company Number: FR-BRISTOL-MYERS SQUIBB COMPANY-13535521

PATIENT
  Age: 1 Day
  Sex: Male

DRUGS (4)
  1. APROVEL TABS 300 MG [Suspect]
     Indication: MATERNAL HYPERTENSION AFFECTING FOETUS
     Route: 064
  2. ARAVA [Concomitant]
     Indication: DRUG EXPOSURE DURING PREGNANCY
     Route: 064
     Dates: end: 20060131
  3. MEDROL [Concomitant]
  4. CORTANCYL [Concomitant]
     Indication: DRUG EXPOSURE DURING PREGNANCY

REACTIONS (6)
  - CAESAREAN SECTION [None]
  - DRUG EXPOSURE DURING PREGNANCY [None]
  - FOETAL DISTRESS SYNDROME [None]
  - FOETAL GROWTH RETARDATION [None]
  - PREMATURE BABY [None]
  - PREMATURE LABOUR [None]
